FAERS Safety Report 9893735 (Version 1)
Quarter: 2014Q1

REPORT INFORMATION
  Report Type: Spontaneous
  Country: SE (occurrence: SE)
  Receive Date: 20140213
  Receipt Date: 20140213
  Transmission Date: 20141002
  Serious: Yes (Death, Other)
  Sender: FDA-Public Use
  Company Number: SE-PFIZER INC-2014040190

PATIENT
  Age: 85 Year
  Sex: Female

DRUGS (3)
  1. CORDARONE [Suspect]
     Indication: ATRIAL FIBRILLATION
     Dosage: UNK
     Route: 065
     Dates: start: 201303, end: 20130625
  2. THACAPZOL [Suspect]
     Indication: THYROIDITIS
     Dosage: 5 MG, 2X/DAY
     Route: 065
     Dates: start: 201309, end: 201309
  3. BENZYLPENICILLIN [Concomitant]
     Dosage: UNK

REACTIONS (7)
  - Skin necrosis [Fatal]
  - Rash [Fatal]
  - Thyroiditis [Unknown]
  - Pseudomonal sepsis [Unknown]
  - Clostridial infection [Unknown]
  - Streptococcal sepsis [Unknown]
  - Bursitis [Unknown]
